FAERS Safety Report 8965665 (Version 1)
Quarter: 2012Q4

REPORT INFORMATION
  Report Type: Spontaneous
  Country: US (occurrence: None)
  Receive Date: 20121207
  Receipt Date: 20121207
  Transmission Date: 20130627
  Serious: Yes (Death, Hospitalization, Other)
  Sender: FDA-Public Use
  Company Number: 2012-21211

PATIENT
  Age: 67 Year
  Sex: Male

DRUGS (11)
  1. BICALUTAMIDE [Suspect]
     Indication: PROSTATE CANCER
     Route: 048
     Dates: start: 20100707
  2. DOCETAXEL [Suspect]
     Indication: PROSTATE CANCER
     Dates: end: 20090619
  3. BEVACIZUMAB [Suspect]
     Indication: PROSTATE CANCER
     Route: 042
     Dates: start: 20090715, end: 20091118
  4. LEUPROLIDE ACETATE [Suspect]
     Indication: PROSTATE CANCER
     Route: 030
     Dates: start: 20090715, end: 20100331
  5. LISINOPRIL (LISINOPRIL) [Concomitant]
  6. CARVEDILOL (CARVEDILOL) [Concomitant]
  7. LASIX (FUROSEMIDE) [Concomitant]
  8. AVELOX (MOXIFLOXACIN HYDROCHLORIDE) [Concomitant]
  9. ATACAND (CANDESARTAN CILEXETIL) [Concomitant]
  10. COUMADIN (WARFARIN SODIUM) [Concomitant]
  11. FISH OIL (FISH OI [Concomitant]

REACTIONS (7)
  - Atrial thrombosis [None]
  - Cardiac amyloidosis [None]
  - Syncope [None]
  - Mental status changes [None]
  - Hypotension [None]
  - Pneumonia [None]
  - Pleural effusion [None]
